FAERS Safety Report 8101818-4 (Version None)
Quarter: 2012Q1

REPORT INFORMATION
  Report Type: 
  Country: None (occurrence: None)
  Receive Date: 20120131
  Receipt Date: 20120125
  Transmission Date: 20120608
  Serious: Yes (Death)
  Sender: FDA-Public Use
  Company Number: PHHY2011US19680

PATIENT
  Sex: Male
  Weight: 198 kg

DRUGS (15)
  1. CALCITRIOL [Concomitant]
     Dosage: 0.25 UG, UNK
  2. CALCIUM [Concomitant]
     Dosage: UNK UKN, UNK
  3. COQ10 [Concomitant]
     Dosage: 10 MG, UNK
  4. PROCHLORPERAZINE [Concomitant]
     Dosage: 10 MG
  5. OMEPRAZOLE [Concomitant]
     Dosage: 20 MG, UNK
  6. VITAMIN B-12 [Concomitant]
     Dosage: 5000 UG, UNK
  7. GLEEVEC [Suspect]
     Indication: CHRONIC MYELOID LEUKAEMIA
     Dosage: 1 DF, QD
     Route: 048
     Dates: start: 20110208
  8. SPRYCEL [Suspect]
     Dosage: UNK UKN, UNK
     Dates: start: 20111112
  9. TERAZOSIN HCL [Concomitant]
     Dosage: 1 MG, UNK
  10. METOPROLOL TARTRATE [Concomitant]
     Dosage: 25 MG, UNK
  11. LOSARTAN POTASSIUM [Concomitant]
     Dosage: 50 MG, UNK
  12. TRICOR [Concomitant]
     Dosage: 48 MG, UNK
  13. MAGNESIUM [Concomitant]
     Dosage: 500 MG, UNK
  14. VITAMIN B6 [Concomitant]
     Dosage: 50 MG, UNK
  15. ASPIRIN [Concomitant]
     Dosage: 81 MG, UNK

REACTIONS (13)
  - LUNG INFILTRATION [None]
  - DEPRESSION [None]
  - DRUG INEFFECTIVE [None]
  - ACUTE MYELOID LEUKAEMIA [None]
  - FATIGUE [None]
  - GASTROOESOPHAGEAL REFLUX DISEASE [None]
  - ACUTE MYOCARDIAL INFARCTION [None]
  - MUSCULOSKELETAL CHEST PAIN [None]
  - CARDIOGENIC SHOCK [None]
  - CHEST DISCOMFORT [None]
  - BACK PAIN [None]
  - WHITE BLOOD CELL COUNT DECREASED [None]
  - CHRONIC MYELOID LEUKAEMIA TRANSFORMATION [None]
